FAERS Safety Report 10760181 (Version 2)
Quarter: 2018Q4

REPORT INFORMATION
  Report Type: Report from Study
  Country: US (occurrence: US)
  Receive Date: 20150204
  Receipt Date: 20181228
  Transmission Date: 20190204
  Serious: Yes (Death)
  Sender: FDA-Public Use
  Company Number: US-CIPLA LTD.-2015US00815

PATIENT

DRUGS (2)
  1. VELIPARIB [Suspect]
     Active Substance: VELIPARIB
     Indication: CERVIX CARCINOMA RECURRENT
     Dosage: 10 MG/M2, BID, ON DAYS 1 TO 5 OF A 21-DAY CYCLE
     Route: 048
  2. TOPOTECAN [Suspect]
     Active Substance: TOPOTECAN HYDROCHLORIDE
     Indication: CERVIX CARCINOMA RECURRENT
     Dosage: 0.6 MG/M2, QD, ON DAYS 1 TO 5 OF A 21-DAY CYCLE
     Route: 042

REACTIONS (2)
  - Neoplasm [Fatal]
  - Malignant neoplasm progression [Fatal]
